FAERS Safety Report 13849444 (Version 1)
Quarter: 2017Q3

REPORT INFORMATION
  Report Type: Report from Study
  Country: IT (occurrence: IT)
  Receive Date: 20170809
  Receipt Date: 20170809
  Transmission Date: 20171127
  Serious: Yes (Other)
  Sender: FDA-Public Use
  Company Number: IT-ACCORD-056824

PATIENT
  Age: 68 Year
  Sex: Female
  Weight: 61 kg

DRUGS (4)
  1. TAMOXIFENE EG [Suspect]
     Active Substance: TAMOXIFEN CITRATE
     Indication: BREAST CANCER
     Dosage: (STRENGTH: 20 MG)
     Route: 048
     Dates: start: 20170505, end: 20170713
  2. CYTISINE [Suspect]
     Active Substance: CYTISINE
     Indication: PRODUCT USED FOR UNKNOWN INDICATION
     Dosage: STRENGTH: 1.5 MG
     Route: 048
     Dates: start: 20170601, end: 20170622
  3. SIMVASTATIN. [Suspect]
     Active Substance: SIMVASTATIN
     Indication: PRODUCT USED FOR UNKNOWN INDICATION
     Route: 048
     Dates: start: 20160101, end: 20170629
  4. IDROQUARK [Suspect]
     Active Substance: HYDROCHLOROTHIAZIDE\RAMIPRIL
     Indication: HYPERTENSION
     Dosage: STRENGTH: 5 MG+25 MG
     Route: 048
     Dates: start: 20160101, end: 20170705

REACTIONS (2)
  - Rash morbilliform [Recovered/Resolved]
  - Rash scarlatiniform [Recovered/Resolved]

NARRATIVE: CASE EVENT DATE: 20170622
